FAERS Safety Report 7057353-8 (Version None)
Quarter: 2010Q4

REPORT INFORMATION
  Report Type: 
  Country: None (occurrence: None)
  Receive Date: 20101022
  Receipt Date: 20101019
  Transmission Date: 20110411
  Serious: Yes (Other)
  Sender: FDA-Public Use
  Company Number: JP-SANOFI-AVENTIS-2010SA063736

PATIENT
  Age: 65 Year
  Sex: Female

DRUGS (1)
  1. TAXOTERE [Suspect]
     Route: 041
     Dates: end: 20100601

REACTIONS (1)
  - LEUKOENCEPHALOPATHY [None]
